FAERS Safety Report 7413532-9 (Version None)
Quarter: 2011Q2

REPORT INFORMATION
  Report Type: 
  Country: None (occurrence: None)
  Receive Date: 20110405
  Receipt Date: 20110330
  Transmission Date: 20111010
  Serious: Yes (Death, Hospitalization, Other)
  Sender: FDA-Public Use
  Company Number: 2011SP002576

PATIENT
  Age: 71 Year
  Sex: Female
  Weight: 56.6996 kg

DRUGS (16)
  1. ABT-888 [Suspect]
     Indication: GLIOBLASTOMA MULTIFORME
     Dosage: 10 MG, BID, PO
     Route: 048
     Dates: start: 20101206, end: 20101221
  2. ABT-888 [Suspect]
     Indication: GLIOBLASTOMA MULTIFORME
     Dosage: 10 MG, BID, PO
     Route: 048
     Dates: start: 20101222, end: 20101223
  3. PANTOPRAZOLE SODIUM [Concomitant]
  4. MULTI-VITAMIN [Concomitant]
  5. TEMOZOLOMIDE [Suspect]
     Indication: GLIOBLASTOMA MULTIFORME
     Dosage: PO
     Route: 048
     Dates: start: 20101222, end: 20101223
  6. TEMOZOLOMIDE [Suspect]
     Indication: GLIOBLASTOMA MULTIFORME
     Dosage: PO
     Route: 048
     Dates: start: 20101206, end: 20101221
  7. ONDANSETRON [Concomitant]
  8. DOCUSATE SODIUM [Concomitant]
  9. ZOLPIDEM TARTRATE [Concomitant]
  10. LEVETIRACETAM [Concomitant]
  11. FUROSEMIDE [Concomitant]
  12. DEXAMETHASONE [Concomitant]
  13. BACTRIM [Concomitant]
  14. NYSTATIN [Concomitant]
  15. ENOXAPARIN SODIUM [Concomitant]
  16. METHYLPRENISONE [Concomitant]

REACTIONS (10)
  - PROTHROMBIN TIME PROLONGED [None]
  - REFUSAL OF TREATMENT BY PATIENT [None]
  - PNEUMONIA [None]
  - FIBRIN D DIMER INCREASED [None]
  - PULMONARY EMBOLISM [None]
  - ACTIVATED PARTIAL THROMBOPLASTIN TIME PROLONGED [None]
  - DEEP VEIN THROMBOSIS [None]
  - PANCYTOPENIA [None]
  - PNEUMOCYSTIS JIROVECI PNEUMONIA [None]
  - ATELECTASIS [None]
